FAERS Safety Report 24963229 (Version 1)
Quarter: 2025Q1

REPORT INFORMATION
  Report Type: Spontaneous
  Country: CA (occurrence: CA)
  Receive Date: 20250213
  Receipt Date: 20250213
  Transmission Date: 20250409
  Serious: Yes (Other)
  Sender: CSL BEHRING
  Company Number: CA-BEH-2025195247

PATIENT
  Age: 66 Year
  Sex: Female
  Weight: 57 kg

DRUGS (3)
  1. HUMAN IMMUNOGLOBULIN G [Suspect]
     Active Substance: HUMAN IMMUNOGLOBULIN G
     Indication: Chronic inflammatory demyelinating polyradiculoneuropathy
     Dosage: 30 G, QD (1 EVERY 1 DAYS)
     Route: 042
  2. HUMAN IMMUNOGLOBULIN G [Suspect]
     Active Substance: HUMAN IMMUNOGLOBULIN G
     Dosage: 30 G, QD (1 EVERY 1 DAYS)
     Route: 042
  3. FLUTICASONE [Concomitant]
     Active Substance: FLUTICASONE
     Indication: Upper respiratory tract infection

REACTIONS (2)
  - Epistaxis [Recovered/Resolved]
  - Haemolysis [Recovered/Resolved]
